FAERS Safety Report 7698861-6 (Version None)
Quarter: 2011Q3

REPORT INFORMATION
  Report Type: 
  Country: None (occurrence: None)
  Receive Date: 20110818
  Receipt Date: 20110818
  Transmission Date: 20111222
  Serious: Yes (Other)
  Sender: FDA-Public Use
  Company Number: None

PATIENT
  Sex: Male
  Weight: 80.6 kg

DRUGS (2)
  1. RISPERDAL [Suspect]
     Indication: AUTISM
     Dosage: 1 1/2 BID PO
     Route: 048
     Dates: start: 20080101
  2. RISPERDAL [Suspect]
     Indication: EPILEPSY
     Dosage: 1 1/2 BID PO
     Route: 048
     Dates: start: 20080101

REACTIONS (1)
  - AGGRESSION [None]
